FAERS Safety Report 18711887 (Version 1)
Quarter: 2021Q1

REPORT INFORMATION
  Report Type: Report from Study
  Country: ES (occurrence: ES)
  Receive Date: 20210107
  Receipt Date: 20210107
  Transmission Date: 20210419
  Serious: Yes (Hospitalization)
  Sender: FDA-Public Use
  Company Number: ES-ASTRAZENECA-2020SF76181

PATIENT
  Age: 50 Year
  Sex: Female

DRUGS (4)
  1. VENLAFAXIN (2664A) [Concomitant]
  2. PALBOCICLIB (8701A) [Suspect]
     Active Substance: PALBOCICLIB
     Route: 048
     Dates: start: 201806, end: 20200624
  3. TELMISARTAN +HYDROCHLOROTHIAZIDE [Concomitant]
  4. FULVESTRANT (2925A) [Suspect]
     Active Substance: FULVESTRANT
     Dosage: 250.0MG UNKNOWN
     Route: 030
     Dates: start: 2020

REACTIONS (1)
  - Pneumonitis [Recovering/Resolving]

NARRATIVE: CASE EVENT DATE: 202003
